FAERS Safety Report 25522979 (Version 1)
Quarter: 2025Q3

REPORT INFORMATION
  Report Type: Spontaneous
  Country: JP (occurrence: JP)
  Receive Date: 20250707
  Receipt Date: 20250707
  Transmission Date: 20251020
  Serious: Yes (Hospitalization, Disabling, Other)
  Sender: ASTELLAS
  Company Number: JP-ASTELLAS-2025-AER-035971

PATIENT
  Age: 75 Year
  Sex: Female

DRUGS (2)
  1. PROGRAF [Suspect]
     Active Substance: TACROLIMUS
     Indication: Rheumatoid arthritis
     Route: 048
  2. Actemra Auto-Injectors for Subcutaneous Injection 162mg [Concomitant]
     Indication: Rheumatoid arthritis
     Route: 065

REACTIONS (3)
  - Fall [Unknown]
  - Fracture [Unknown]
  - Haemorrhage intracranial [Unknown]

NARRATIVE: CASE EVENT DATE: 20240101
